FAERS Safety Report 13292836 (Version 1)
Quarter: 2017Q1

REPORT INFORMATION
  Report Type: Spontaneous
  Country: DE (occurrence: DE)
  Receive Date: 20170303
  Receipt Date: 20170303
  Transmission Date: 20170428
  Serious: Yes (Congenital Anomaly, Other)
  Sender: FDA-Public Use
  Company Number: DE-PFIZER INC-2017084904

PATIENT
  Sex: Male
  Weight: 2.68 kg

DRUGS (2)
  1. FOLIC ACID. [Concomitant]
     Active Substance: FOLIC ACID
     Indication: PROPHYLAXIS OF NEURAL TUBE DEFECT
     Dosage: 5 MG, 1X/DAY (0 - 39 GESTATIONAL WEEK)
     Route: 064
     Dates: start: 20160108, end: 20161007
  2. SULFASALAZINE. [Suspect]
     Active Substance: SULFASALAZINE
     Indication: RHEUMATOID ARTHRITIS
     Dosage: 500 MG, 2X/DAY (0 - 39 GESTATIONAL WEEK)
     Route: 064
     Dates: start: 20160108, end: 20161007

REACTIONS (3)
  - Small for dates baby [Recovering/Resolving]
  - Maternal exposure during pregnancy [Recovering/Resolving]
  - Microcephaly [Recovering/Resolving]

NARRATIVE: CASE EVENT DATE: 20160108
